FAERS Safety Report 6523002-8 (Version None)
Quarter: 2009Q4

REPORT INFORMATION
  Report Type: 
  Country: None (occurrence: None)
  Receive Date: 20091222
  Receipt Date: 20091222
  Transmission Date: 20100525
  Serious: Yes (Hospitalization)
  Sender: FDA-Public Use
  Company Number: GB-EBEWE-1940OXALI09

PATIENT
  Age: 69 Year
  Sex: Male

DRUGS (2)
  1. OXALIPLATIN [Suspect]
     Indication: COLORECTAL CANCER METASTATIC
     Dosage: 85 MG/M2, Q2 WEEKS, IV
     Route: 042
     Dates: start: 20070625, end: 20071015
  2. CAPECITABINE [Suspect]
     Indication: RECTAL CANCER
     Dosage: 800 MG/M2, BID, ORAL
     Route: 048
     Dates: start: 20070625

REACTIONS (3)
  - ABDOMINAL PAIN [None]
  - PERIPHERAL ISCHAEMIA [None]
  - VOMITING [None]
